FAERS Safety Report 5591415-7 (Version None)
Quarter: 2008Q1

REPORT INFORMATION
  Report Type: 
  Country: None (occurrence: None)
  Receive Date: 20080115
  Receipt Date: 20080114
  Transmission Date: 20080703
  Serious: Yes (Hospitalization)
  Sender: FDA-Public Use
  Company Number: FR-JNJFOC-20080102759

PATIENT
  Sex: Female

DRUGS (7)
  1. HALDOL [Suspect]
     Indication: PSYCHOTIC DISORDER
     Route: 048
  2. OXYCONTIN [Suspect]
     Indication: CANCER PAIN
     Route: 048
  3. OXYNORM [Suspect]
     Indication: CANCER PAIN
     Route: 048
  4. CLASTOBAN [Suspect]
     Indication: PALLIATIVE CARE
     Route: 048
  5. CANDESARTAN CILEXETIL [Suspect]
     Indication: HYPERTENSION
     Route: 048
  6. HYDROCHLOROTHIAZIDE [Suspect]
     Indication: HYPERTENSION
     Route: 048
  7. FORLAX [Concomitant]
     Indication: CONSTIPATION
     Route: 048

REACTIONS (1)
  - PRURITUS [None]
